FAERS Safety Report 24542918 (Version 2)
Quarter: 2025Q3

REPORT INFORMATION
  Report Type: Spontaneous
  Country: JP (occurrence: JP)
  Receive Date: 20241024
  Receipt Date: 20250822
  Transmission Date: 20251021
  Serious: Yes (Hospitalization)
  Sender: PADAGIS
  Company Number: JP-PADAGIS-2024PAD01633

PATIENT

DRUGS (1)
  1. TESTOSTERONE CYPIONATE [Suspect]
     Active Substance: TESTOSTERONE CYPIONATE
     Indication: Transgender hormonal therapy
     Route: 065

REACTIONS (3)
  - Breast cancer [Unknown]
  - Product use issue [Unknown]
  - Product use in unapproved indication [Unknown]
